FAERS Safety Report 16326722 (Version 1)
Quarter: 2019Q2

REPORT INFORMATION
  Report Type: Spontaneous
  Country: ES (occurrence: ES)
  Receive Date: 20190517
  Receipt Date: 20190517
  Transmission Date: 20190711
  Serious: Yes (Life-Threatening, Hospitalization, Disabling)
  Sender: FDA-Public Use
  Company Number: ES-ELI_LILLY_AND_COMPANY-ES201905007116

PATIENT
  Age: 72 Year
  Sex: Female

DRUGS (14)
  1. FORSTEO 250UG/ML [Suspect]
     Active Substance: TERIPARATIDE
     Indication: OSTEOPOROSIS
     Dosage: UNK, DAILY
     Route: 058
     Dates: start: 20170412, end: 20171201
  2. SERTRALINA [SERTRALINE] [Concomitant]
     Dosage: UNK, UNKNOWN
     Route: 065
  3. ZAMENE [Concomitant]
     Active Substance: DEFLAZACORT
     Dosage: UNK, UNKNOWN
     Route: 065
  4. TARDYFERON [Concomitant]
     Active Substance: FERROUS SULFATE
     Dosage: UNK, UNKNOWN
     Route: 065
  5. ZOLPIDEM [Concomitant]
     Active Substance: ZOLPIDEM\ZOLPIDEM TARTRATE
     Dosage: UNK, UNKNOWN
     Route: 065
  6. PARACETAMOL [Concomitant]
     Active Substance: ACETAMINOPHEN
     Dosage: UNK, UNKNOWN
     Route: 065
  7. PENTOXIFILINA [Concomitant]
     Active Substance: PENTOXIFYLLINE
     Dosage: UNK, UNKNOWN
     Route: 065
  8. NOLOTIL [METAMIZOLE MAGNESIUM] [Concomitant]
     Active Substance: METAMIZOLE MAGNESIUM
     Dosage: UNK, UNKNOWN
     Route: 065
  9. TRAMADOL. [Concomitant]
     Active Substance: TRAMADOL
     Dosage: UNK, UNKNOWN
     Route: 065
  10. OMEPRAZOL [OMEPRAZOLE] [Concomitant]
     Dosage: UNK, UNKNOWN
     Route: 065
  11. SINEMET PLUS [Concomitant]
     Active Substance: CARBIDOPA\LEVODOPA
     Dosage: UNK, UNKNOWN
     Route: 065
  12. IDEOS [Concomitant]
     Active Substance: CALCIUM CARBONATE\CHOLECALCIFEROL
     Dosage: UNK, UNKNOWN
     Route: 065
  13. ZALDIAR [Concomitant]
     Active Substance: ACETAMINOPHEN\TRAMADOL HYDROCHLORIDE
     Dosage: UNK, UNKNOWN
     Route: 065
  14. FUROSEMIDA [FUROSEMIDE] [Concomitant]
     Dosage: UNK, UNKNOWN
     Route: 065

REACTIONS (2)
  - Calciphylaxis [Recovering/Resolving]
  - Skin ulcer [Recovering/Resolving]

NARRATIVE: CASE EVENT DATE: 20171201
